FAERS Safety Report 8546205-X (Version None)
Quarter: 2012Q3

REPORT INFORMATION
  Report Type: 
  Country: None (occurrence: None)
  Receive Date: 20120727
  Receipt Date: 20120726
  Transmission Date: 20120928
  Serious: Yes (Death, Hospitalization)
  Sender: FDA-Public Use
  Company Number: PHHO2011US05878

PATIENT
  Sex: Female
  Weight: 57.143 kg

DRUGS (2)
  1. BKM120 [Suspect]
     Indication: ENDOMETRIAL CANCER METASTATIC
     Dosage: 100 MG, QD
     Route: 048
     Dates: start: 20110311, end: 20110319
  2. METRONIDAZOLE [Suspect]
     Indication: ENDOMETRIAL CANCER METASTATIC
     Dosage: 500 MG, QD
     Route: 048
     Dates: start: 20110324, end: 20110328

REACTIONS (5)
  - DIARRHOEA [None]
  - VOMITING [None]
  - NEOPLASM MALIGNANT [None]
  - NAUSEA [None]
  - NEOPLASM PROGRESSION [None]
